FAERS Safety Report 13721125 (Version 1)
Quarter: 2017Q3

REPORT INFORMATION
  Report Type: Spontaneous
  Country: US (occurrence: US)
  Receive Date: 20170706
  Receipt Date: 20170706
  Transmission Date: 20171127
  Serious: Yes (Life-Threatening, Hospitalization)
  Sender: FDA-Public Use
  Company Number: None

PATIENT
  Age: 30 Year
  Sex: Male
  Weight: 88.53 kg

DRUGS (1)
  1. SULFAMETHOXAZOLE-TMP GENERIC FOR BACTRIM DS TAB [Suspect]
     Active Substance: SULFAMETHOXAZOLE\TRIMETHOPRIM
     Indication: INFECTION
     Dosage: 20 1 TAB 2X/DAY MOUTH
     Route: 048

REACTIONS (2)
  - Staring [None]
  - Seizure [None]

NARRATIVE: CASE EVENT DATE: 20170518
